FAERS Safety Report 8962916 (Version 17)
Quarter: 2015Q2

REPORT INFORMATION
  Report Type: Spontaneous
  Country: US (occurrence: US)
  Receive Date: 20121213
  Receipt Date: 20150611
  Transmission Date: 20150821
  Serious: Yes (Other)
  Sender: FDA-Public Use
  Company Number: US-PFIZER INC-2012309854

PATIENT
  Age: 68 Year
  Sex: Male
  Weight: 100 kg

DRUGS (23)
  1. SUTENT [Suspect]
     Active Substance: SUNITINIB MALATE
     Dosage: 37.5 MG, DAILY, CYCLIC (TAKES (1)25MG TAB AND (1)12.5MG TAB) 28 DAYS ON/14 DAYS OFF
     Dates: start: 20130122
  2. VITAMIN B [Concomitant]
     Active Substance: VITAMIN B
     Dosage: UNK
     Dates: start: 20100101
  3. VITAMIN D [Concomitant]
     Active Substance: CHOLECALCIFEROL
     Dosage: 1000 IU, 1X/DAY
     Dates: start: 20100101
  4. FINASTERIDE. [Concomitant]
     Active Substance: FINASTERIDE
     Dosage: 5 MG, 1X/DAY
  5. FLOMAX [Concomitant]
     Active Substance: TAMSULOSIN HYDROCHLORIDE
     Dosage: 0.4 MG, UNK
  6. OSTEO BI-FLEX [Concomitant]
     Active Substance: CHONDROITIN SULFATE A\GLUCOSAMINE
     Dosage: DAILY
  7. SUPER VITAMIN B COMPLEX [Concomitant]
     Dosage: DAILY
  8. ATENOLOL. [Concomitant]
     Active Substance: ATENOLOL
     Dosage: 50 MG, 1X/DAY
     Dates: start: 20121001
  9. ALDACTAZIDE [Concomitant]
     Active Substance: HYDROCHLOROTHIAZIDE\SPIRONOLACTONE
     Dosage: HYDROCHLOROTHIAZIDE 50, SPIRONOLACTONE 50
     Dates: start: 20121213, end: 20130110
  10. COQ10 [Concomitant]
     Active Substance: UBIDECARENONE
     Dosage: 200 MG, 1X/DAY
  11. NORVASC [Concomitant]
     Active Substance: AMLODIPINE BESYLATE
     Dosage: 10 MG, 1X/DAY
  12. VIAGRA [Concomitant]
     Active Substance: SILDENAFIL CITRATE
     Dosage: 100 MG, 1X/DAY
     Dates: start: 20100101
  13. ALDACTONE [Concomitant]
     Active Substance: SPIRONOLACTONE
     Dosage: 25 MG, 1X/DAY
     Dates: start: 20121001
  14. NORVASC [Concomitant]
     Active Substance: AMLODIPINE BESYLATE
     Indication: HYPERTENSION
     Dosage: 2.5 MG, 1X/DAY
     Dates: start: 20121121
  15. NORVASC [Concomitant]
     Active Substance: AMLODIPINE BESYLATE
     Dosage: 5 MG, 1X/DAY
     Dates: start: 20121129
  16. ALDACTONE [Concomitant]
     Active Substance: SPIRONOLACTONE
     Dosage: 50 MG
     Dates: start: 20130110
  17. SUTENT [Suspect]
     Active Substance: SUNITINIB MALATE
     Indication: METASTATIC RENAL CELL CARCINOMA
     Dosage: 50 MG, CYCLIC (4 WEEKS ON AND 2 WEEKS OFF BASIS)
     Dates: start: 20121114
  18. SPIRONOLACTONE. [Concomitant]
     Active Substance: SPIRONOLACTONE
     Indication: HYPERTENSION
     Dosage: 50 MG, 1X/DAY
     Dates: start: 20121001
  19. ASPIRIN. [Concomitant]
     Active Substance: ASPIRIN
     Dosage: 81 MG, 1X/DAY
     Dates: start: 20100101
  20. BIOFLEX [Concomitant]
     Active Substance: GLUCOSAMINE SULFATE
     Dosage: UNK
     Dates: start: 20100101
  21. FISH OIL [Concomitant]
     Active Substance: FISH OIL
     Dosage: UNK
     Dates: start: 20081001
  22. BIOFREEZE [Concomitant]
     Active Substance: MENTHOL
     Dosage: UNK
     Dates: start: 20100101
  23. OMEPRAZOLE. [Concomitant]
     Active Substance: OMEPRAZOLE
     Dosage: 20 MG, 1X/DAY

REACTIONS (33)
  - Dry mouth [Unknown]
  - Diarrhoea [Unknown]
  - Contusion [Unknown]
  - Pain in extremity [Not Recovered/Not Resolved]
  - Metastatic renal cell carcinoma [Unknown]
  - Renal impairment [Unknown]
  - Rib fracture [Recovered/Resolved]
  - Glossodynia [Unknown]
  - Abdominal distension [Recovered/Resolved]
  - Muscle spasms [Unknown]
  - Hypotension [Unknown]
  - Pain in extremity [Unknown]
  - Glucose tolerance impaired [Unknown]
  - Disease progression [Unknown]
  - Dysgeusia [Not Recovered/Not Resolved]
  - Decreased appetite [Unknown]
  - Hyperaesthesia [Unknown]
  - Movement disorder [Unknown]
  - White blood cell count decreased [Not Recovered/Not Resolved]
  - Nasopharyngitis [Recovering/Resolving]
  - Blood glucose increased [Unknown]
  - Renal impairment [Unknown]
  - Weight increased [Not Recovered/Not Resolved]
  - Oral pain [Unknown]
  - Weight decreased [Unknown]
  - Sensory disturbance [Unknown]
  - Heart rate increased [Unknown]
  - Palmar-plantar erythrodysaesthesia syndrome [Not Recovered/Not Resolved]
  - Ascites [Unknown]
  - Fall [Unknown]
  - Fatigue [Not Recovered/Not Resolved]
  - Blood bilirubin abnormal [Unknown]
  - Nodule [Unknown]

NARRATIVE: CASE EVENT DATE: 2012
